FAERS Safety Report 6210642-9 (Version None)
Quarter: 2009Q2

REPORT INFORMATION
  Report Type: 
  Country: None (occurrence: None)
  Receive Date: 20090601
  Receipt Date: 20090525
  Transmission Date: 20091009
  Serious: Yes (Death, Hospitalization, Other)
  Sender: FDA-Public Use
  Company Number: ES-AMGEN-UK344035

PATIENT
  Age: 47 Year
  Sex: Female

DRUGS (13)
  1. MIMPARA [Suspect]
     Indication: DRUG USE FOR UNKNOWN INDICATION
     Route: 048
     Dates: start: 20080401
  2. ACFOL [Concomitant]
     Route: 065
  3. PYRIDOXINE [Concomitant]
     Route: 065
  4. THIAMINE HCL [Concomitant]
     Route: 065
  5. FUROSEMIDE [Concomitant]
     Route: 065
  6. OMEPRAZOLE [Concomitant]
     Route: 065
  7. PREDNISONE [Concomitant]
     Route: 065
  8. SEVELAMER [Concomitant]
     Route: 065
  9. ATORVASTATIN CALCIUM [Concomitant]
     Route: 065
  10. VALIUM [Concomitant]
     Route: 065
  11. IRBESARTAN [Concomitant]
     Route: 065
  12. FOSRENOL [Concomitant]
     Route: 065
  13. ARANESP [Concomitant]
     Route: 065

REACTIONS (3)
  - CARDIAC DISORDER [None]
  - HYPOAESTHESIA [None]
  - PRURITUS [None]
